FAERS Safety Report 6693149-4 (Version None)
Quarter: 2010Q2

REPORT INFORMATION
  Report Type: 
  Country: None (occurrence: None)
  Receive Date: 20100422
  Receipt Date: 20100412
  Transmission Date: 20101027
  Serious: Yes (Hospitalization, Other)
  Sender: FDA-Public Use
  Company Number: US-ELI_LILLY_AND_COMPANY-US201004003431

PATIENT
  Sex: Female
  Weight: 130.16 kg

DRUGS (17)
  1. BYETTA [Suspect]
     Indication: TYPE 2 DIABETES MELLITUS
     Dosage: 5 UG, 2/D
  2. BYETTA [Suspect]
     Dosage: 10 UG, 2/D
  3. BYETTA [Suspect]
     Dosage: 5 UG, 2/D
     Dates: start: 20100101
  4. GLIPIZIDE [Concomitant]
     Indication: TYPE 2 DIABETES MELLITUS
     Dosage: 5 MG, 2/D
  5. ACCUPRIL [Concomitant]
     Indication: HYPERTENSION
     Dosage: 10 MG, DAILY (1/D)
  6. ALBUTEROL [Concomitant]
     Indication: DYSPNOEA
     Dosage: UNK, AS NEEDED
  7. ASPIRIN [Concomitant]
     Indication: CARDIAC DISORDER
     Dosage: 81 MG, DAILY (1/D)
  8. CALCITRIOL [Concomitant]
     Dosage: 0.5 MG, UNKNOWN
  9. CALCIUM [Concomitant]
     Dosage: 2000 MG, DAILY (1/D)
  10. XANAX [Concomitant]
     Indication: PANIC ATTACK
     Dosage: UNK, AS NEEDED
  11. FLOVENT [Concomitant]
     Indication: DYSPNOEA
     Dosage: 1 D/F, AS NEEDED
  12. LIPITOR [Concomitant]
     Dosage: 20 MG, DAILY (1/D)
  13. PAXIL [Concomitant]
     Dosage: 75 MG, DAILY (1/D)
  14. ABILIFY [Concomitant]
     Dosage: 5 MG, DAILY (1/D)
  15. MIRALAX [Concomitant]
  16. PREVACID [Concomitant]
     Indication: HELICOBACTER INFECTION
  17. XYZAL [Concomitant]
     Indication: SINUS DISORDER
     Dosage: 5 MG, DAILY (1/D)

REACTIONS (5)
  - AORTIC VALVE DISEASE [None]
  - THINKING ABNORMAL [None]
  - THYROID DISORDER [None]
  - THYROID FUNCTION TEST ABNORMAL [None]
  - THYROID NEOPLASM [None]
